FAERS Safety Report 22647444 (Version 1)
Quarter: 2023Q2

REPORT INFORMATION
  Report Type: Spontaneous
  Country: US (occurrence: US)
  Receive Date: 20230628
  Receipt Date: 20230628
  Transmission Date: 20230722
  Serious: No
  Sender: FDA-Public Use
  Company Number: US-BRISTOL-MYERS SQUIBB COMPANY-2023-089430

PATIENT
  Age: 51 Year
  Sex: Female

DRUGS (2)
  1. OPDIVO [Suspect]
     Active Substance: NIVOLUMAB
     Indication: Cervix carcinoma
     Dosage: DOSE : O: 55MG; Y: 150MG;     FREQ : O: 55MG EVERY 3 WEEKS; Y: 150MG EVERY 3 WEEKS
     Route: 042
  2. YERVOY [Suspect]
     Active Substance: IPILIMUMAB
     Indication: Cervix carcinoma
     Dosage: DOSE : O: 55MG; Y: 150MG;     FREQ : O: 55MG EVERY 3 WEEKS; Y: 150MG EVERY 3 WEEKS
     Route: 042

REACTIONS (1)
  - Off label use [Unknown]
